FAERS Safety Report 6162387-1 (Version None)
Quarter: 2009Q2

REPORT INFORMATION
  Report Type: 
  Country: None (occurrence: None)
  Receive Date: 20090421
  Receipt Date: 20090409
  Transmission Date: 20091009
  Serious: Yes (Hospitalization)
  Sender: FDA-Public Use
  Company Number: NL-PFIZER INC-2009177074

PATIENT

DRUGS (6)
  1. GENOTROPIN [Suspect]
     Indication: PRADER-WILLI SYNDROME
     Dates: start: 20080301
  2. GENOTROPIN [Suspect]
     Dosage: UNK
     Dates: start: 20081001
  3. VENTOLIN [Concomitant]
     Indication: ASTHMA
     Dosage: UNK
  4. PULMICORT-100 [Concomitant]
     Indication: ASTHMA
     Dosage: UNK
  5. ATROVENT [Concomitant]
     Indication: ASTHMA
     Dosage: UNK
  6. PREDNISONE [Concomitant]
     Indication: ASTHMA

REACTIONS (1)
  - TONSILLAR HYPERTROPHY [None]
